FAERS Safety Report 24794825 (Version 1)
Quarter: 2024Q4

REPORT INFORMATION
  Report Type: Spontaneous
  Country: US (occurrence: US)
  Receive Date: 20241231
  Receipt Date: 20241231
  Transmission Date: 20250115
  Serious: Yes (Other)
  Sender: BAYER HEALTHCARE PHARMACEUTICALS INC.
  Company Number: US-BAYER-2024A182482

PATIENT
  Age: 19 Year
  Sex: Male

DRUGS (2)
  1. KOVALTRY [Suspect]
     Active Substance: ANTIHEMOPHILIC FACTOR, HUMAN RECOMBINANT
     Indication: Factor VIII deficiency
     Dosage: KOVALTRY 2000 IU, INFUSE 2200 UNITS (1980-2420) SLOW IV PUSH ON TUESDAYS, THURSDAYS AND SUNDAYS
     Route: 042
     Dates: start: 202303
  2. KOVALTRY [Suspect]
     Active Substance: ANTIHEMOPHILIC FACTOR, HUMAN RECOMBINANT
     Indication: Factor VIII deficiency
     Dosage: 1 DF
     Route: 042
     Dates: start: 202412, end: 202412

REACTIONS (2)
  - Haemarthrosis [Not Recovered/Not Resolved]
  - Haemarthrosis [None]

NARRATIVE: CASE EVENT DATE: 20241201
